FAERS Safety Report 16809010 (Version 1)
Quarter: 2019Q4

REPORT INFORMATION
  Report Type: Spontaneous
  Country: US (occurrence: US)
  Receive Date: 20190913
  Receipt Date: 20190913
  Transmission Date: 20200122
  Serious: Yes (Other)
  Sender: FDA-Public Use
  Company Number: None

PATIENT
  Age: 39 Year
  Sex: Female
  Weight: 74.25 kg

DRUGS (9)
  1. SEEKING HEALTH MULTI-VITAMIN [Concomitant]
  2. METHYLPHENIDATE HCL ER 36MG [Suspect]
     Active Substance: METHYLPHENIDATE HYDROCHLORIDE
     Indication: ATTENTION DEFICIT/HYPERACTIVITY DISORDER
     Dosage: ?          QUANTITY:1 TABLET(S);?
     Route: 048
     Dates: start: 20190728, end: 20190822
  3. YASMIN [Concomitant]
     Active Substance: DROSPIRENONE\ETHINYL ESTRADIOL
  4. CONCERTA [Concomitant]
     Active Substance: METHYLPHENIDATE HYDROCHLORIDE
  5. DEPLIN [Concomitant]
     Active Substance: LEVOMEFOLATE CALCIUM
  6. ZOLOFT [Concomitant]
     Active Substance: SERTRALINE HYDROCHLORIDE
  7. TRAZEDONE [Concomitant]
  8. OMEGA 3-6-9 COMPLEX [Concomitant]
  9. CALTRATE MINIS [Concomitant]

REACTIONS (13)
  - Panic attack [None]
  - Lethargy [None]
  - Tinnitus [None]
  - Drug ineffective [None]
  - Product substitution issue [None]
  - Dizziness [None]
  - Aphasia [None]
  - Headache [None]
  - Hyperhidrosis [None]
  - Irritability [None]
  - Diarrhoea [None]
  - Muscle twitching [None]
  - Dysarthria [None]

NARRATIVE: CASE EVENT DATE: 20190801
